FAERS Safety Report 9437716 (Version 2)
Quarter: 2013Q3

REPORT INFORMATION
  Report Type: Spontaneous
  Country: JP (occurrence: None)
  Receive Date: 20130731
  Receipt Date: 20130809
  Transmission Date: 20140515
  Serious: Yes (Hospitalization)
  Sender: FDA-Public Use
  Company Number: 2013-002395

PATIENT
  Age: 68 Year
  Sex: Female

DRUGS (4)
  1. BENET [Suspect]
     Indication: OSTEOPOROSIS
     Route: 048
     Dates: start: 2003, end: 20130627
  2. MICOMBI (COMBINATION (HYDROCHLOROTHIAZIDE, TELMISARTAN) [Concomitant]
  3. DEPAS (ETIZOLAM) [Concomitant]
  4. CONIEL (BENIDIPINE HYDROCHLORIDE) [Concomitant]

REACTIONS (1)
  - Atypical femur fracture [None]
